FAERS Safety Report 16945724 (Version 2)
Quarter: 2019Q4

REPORT INFORMATION
  Report Type: Spontaneous
  Country: HU (occurrence: HU)
  Receive Date: 20191022
  Receipt Date: 20191106
  Transmission Date: 20200122
  Serious: Yes (Other)
  Sender: FDA-Public Use
  Company Number: NVSC2019HU006424

PATIENT
  Age: 20 Year
  Sex: Female

DRUGS (2)
  1. CYCLOSPORINE. [Suspect]
     Active Substance: CYCLOSPORINE
     Indication: PRODUCT USED FOR UNKNOWN INDICATION
     Dosage: UNK
     Route: 065
  2. CERTOLIZUMAB [Concomitant]
     Active Substance: CERTOLIZUMAB
     Indication: PRODUCT USED FOR UNKNOWN INDICATION
     Dosage: UNK
     Route: 065
     Dates: start: 201905

REACTIONS (16)
  - Aspergillus infection [Unknown]
  - Hypersensitivity [Unknown]
  - Back pain [Recovered/Resolved]
  - Erythema [Recovered/Resolved]
  - Cutaneous symptom [Recovered/Resolved]
  - HLA-B*27 positive [Unknown]
  - Skin abrasion [Recovered/Resolved]
  - Arthralgia [Unknown]
  - Skin exfoliation [Recovered/Resolved]
  - Mite allergy [Unknown]
  - Red blood cell sedimentation rate increased [Unknown]
  - Psoriatic arthropathy [Unknown]
  - Sacroiliitis [Unknown]
  - Fungal infection [Unknown]
  - Alternaria infection [Unknown]
  - C-reactive protein increased [Unknown]

NARRATIVE: CASE EVENT DATE: 2018
